FAERS Safety Report 5143158-1 (Version None)
Quarter: 2006Q4

REPORT INFORMATION
  Report Type: 
  Country: None (occurrence: None)
  Receive Date: 20061030
  Receipt Date: 20061017
  Transmission Date: 20070319
  Serious: Yes (Other)
  Sender: FDA-Public Use
  Company Number: 2006127623

PATIENT
  Age: 33 Year
  Sex: Female

DRUGS (3)
  1. PREDNISOLONE [Suspect]
     Dosage: (1 IN 1 D)
  2. METFORMIN HCL [Suspect]
     Indication: DIABETES MELLITUS
     Dosage: 2 GRAM (1 GRAM 2 IN 1 D), ORAL
     Route: 048
  3. PIOGLITAZONE HCL [Suspect]
     Dosage: 45 MG (45 MG, 1 IN 1 D)

REACTIONS (3)
  - DIABETES MELLITUS INADEQUATE CONTROL [None]
  - MACULAR OEDEMA [None]
  - UVEITIS [None]
